FAERS Safety Report 14254780 (Version 1)
Quarter: 2017Q4

REPORT INFORMATION
  Report Type: Spontaneous
  Country: US (occurrence: US)
  Receive Date: 20171205
  Receipt Date: 20171205
  Transmission Date: 20180321
  Serious: Yes (Disabling)
  Sender: FDA-Public Use
  Company Number: None

PATIENT
  Age: 65 Year
  Weight: 68.4 kg

DRUGS (8)
  1. METHYLCOBALAMINE (B12) [Concomitant]
  2. MIRTAZAPINE. [Concomitant]
     Active Substance: MIRTAZAPINE
  3. FISH OIL [Concomitant]
     Active Substance: FISH OIL
  4. PYRIDOXAL-5-PHOSPHATE (B6) [Concomitant]
  5. CALCIUM [Concomitant]
     Active Substance: CALCIUM
  6. YUVAFEM [Concomitant]
     Active Substance: ESTRADIOL HEMIHYDRATE
  7. FORFIVO XL [Suspect]
     Active Substance: BUPROPION HYDROCHLORIDE
     Indication: DEPRESSION
     Dosage: ?          QUANTITY:1 TABLET(S);?
     Route: 048
  8. L-METHYLTETRAHYDROFOLATE WITH VITAMIN D3 [Concomitant]

REACTIONS (3)
  - Acne cystic [None]
  - Drug effect decreased [None]
  - Product substitution issue [None]

NARRATIVE: CASE EVENT DATE: 20171205
